FAERS Safety Report 8947895 (Version 2)
Quarter: 2013Q1

REPORT INFORMATION
  Report Type: Spontaneous
  Country: US (occurrence: None)
  Receive Date: 20121127
  Receipt Date: 20121204
  Transmission Date: 20140127
  Serious: Yes (Other)
  Sender: FDA-Public Use
  Company Number: ACO_33069_2012

PATIENT
  Age: 60 Year
  Sex: Female
  Weight: 54.4 kg

DRUGS (6)
  1. AMPYRA [Suspect]
     Indication: GAIT DISTURBANCE
     Route: 048
     Dates: start: 201210, end: 2012
  2. BETASERON (ALBUMIN HUMAN, GLUCOSE, INTERFERON BETA) [Concomitant]
  3. DETROL LA (TOLTERODINE L-TARTRATE) [Concomitant]
  4. LISINOPRIL [Concomitant]
  5. PRILOSEC (OMEPRAZOLE MAGNESIUM) [Concomitant]
  6. BACLOFEN [Concomitant]

REACTIONS (2)
  - Convulsion [None]
  - Inappropriate schedule of drug administration [None]
